FAERS Safety Report 20612679 (Version 4)
Quarter: 2022Q2

REPORT INFORMATION
  Report Type: Spontaneous
  Country: JP (occurrence: JP)
  Receive Date: 20220318
  Receipt Date: 20220602
  Transmission Date: 20220721
  Serious: Yes (Other)
  Sender: FDA-Public Use
  Company Number: JP-JNJFOC-20220330101

PATIENT
  Age: 52 Year
  Sex: Male
  Weight: 50 kg

DRUGS (7)
  1. ZYTIGA [Suspect]
     Active Substance: ABIRATERONE ACETATE
     Indication: Prostate cancer
     Route: 048
     Dates: start: 20220130, end: 20220215
  2. TAPENTADOL HYDROCHLORIDE [Concomitant]
     Active Substance: TAPENTADOL HYDROCHLORIDE
     Indication: Pain
     Dosage: 4 TABLETS/DAY
     Route: 048
     Dates: start: 20220130
  3. LOXOPROFEN SODIUM DIHYDRATE [Concomitant]
     Active Substance: LOXOPROFEN SODIUM DIHYDRATE
     Indication: Pain
     Dosage: 3 TABLETS/DAY
     Route: 048
     Dates: start: 20220130
  4. PREDONINE [Concomitant]
     Active Substance: PREDNISOLONE
     Indication: Prostate cancer
     Route: 048
     Dates: start: 20220130, end: 20220215
  5. REBAMIPIDE [Concomitant]
     Active Substance: REBAMIPIDE
     Indication: Prophylaxis against gastrointestinal ulcer
     Dosage: 3 TABLETS/DAY
     Route: 048
     Dates: start: 20220130
  6. SYMPROIC [Concomitant]
     Active Substance: NALDEMEDINE
     Indication: Constipation prophylaxis
     Route: 048
     Dates: start: 20220130
  7. MAGNESIUM OXIDE [Concomitant]
     Active Substance: MAGNESIUM OXIDE
     Indication: Constipation prophylaxis
     Dosage: 6 TABLETS/DAY
     Route: 048
     Dates: start: 20220130

REACTIONS (1)
  - Pancytopenia [Recovered/Resolved]

NARRATIVE: CASE EVENT DATE: 20220210
